FAERS Safety Report 15136427 (Version 1)
Quarter: 2018Q3

REPORT INFORMATION
  Report Type: Spontaneous
  Country: US (occurrence: US)
  Receive Date: 20180618
  Receipt Date: 20180618
  Transmission Date: 20181010
  Serious: Yes (Other)
  Sender: FDA-Public Use
  Company Number: None

PATIENT
  Age: 23 Year
  Sex: Female
  Weight: 88.45 kg

DRUGS (2)
  1. MIRENA [Suspect]
     Active Substance: LEVONORGESTREL
     Indication: CONTRACEPTION
     Dates: start: 20160425, end: 20180615
  2. ZOLOFT [Concomitant]
     Active Substance: SERTRALINE HYDROCHLORIDE

REACTIONS (18)
  - Weight increased [None]
  - Vomiting [None]
  - Increased appetite [None]
  - Muscle spasms [None]
  - Ovarian cyst [None]
  - Nausea [None]
  - Libido increased [None]
  - Migraine [None]
  - Amenorrhoea [None]
  - Mood swings [None]
  - Breast tenderness [None]
  - Acne cystic [None]
  - Libido decreased [None]
  - Vaginal haemorrhage [None]
  - Abdominal distension [None]
  - Hormone level abnormal [None]
  - Depression [None]
  - Anxiety [None]

NARRATIVE: CASE EVENT DATE: 20180601
